FAERS Safety Report 9853592 (Version 1)
Quarter: 2014Q1

REPORT INFORMATION
  Report Type: Spontaneous
  Country: US (occurrence: US)
  Receive Date: 20140129
  Receipt Date: 20140129
  Transmission Date: 20141002
  Serious: Yes (Other)
  Sender: FDA-Public Use
  Company Number: US-BAYER-2014-012460

PATIENT
  Age: 26 Year
  Sex: Female
  Weight: 50 kg

DRUGS (1)
  1. MIRENA [Suspect]
     Indication: CONTRACEPTION
     Dosage: DAILY DOSE 20 ?G
     Dates: start: 2007, end: 20120625

REACTIONS (6)
  - Cervical dysplasia [None]
  - Cervical dysplasia [None]
  - Human papilloma virus test positive [None]
  - Cervical dysplasia [None]
  - Cervical dysplasia [None]
  - Device dislocation [Recovered/Resolved]
